FAERS Safety Report 8814826 (Version 2)
Quarter: 2013Q1

REPORT INFORMATION
  Report Type: Spontaneous
  Country: JP (occurrence: JP)
  Receive Date: 20120928
  Receipt Date: 20130226
  Transmission Date: 20140127
  Serious: Yes (Death, Hospitalization)
  Sender: FDA-Public Use
  Company Number: JP-PFIZER INC-2012240230

PATIENT
  Age: 73 Year
  Sex: Female

DRUGS (5)
  1. IRINOTECAN HCL [Suspect]
     Indication: COLON CANCER
     Dosage: UNK, ONCE A DAY
     Route: 041
  2. FLUOROURACIL [Suspect]
     Dosage: UNK, ONCE A DAY
     Route: 040
  3. FLUOROURACIL [Suspect]
     Dosage: UNK, ONCE IN 2DAYS
     Route: 041
  4. LEVOFOLINATE [Suspect]
     Indication: COLON CANCER
     Dosage: UNK, ONCE A DAY
     Route: 041
  5. ERBITUX [Suspect]
     Indication: COLON CANCER
     Dosage: UNK, ONCE A DAY
     Route: 041

REACTIONS (1)
  - Interstitial lung disease [Fatal]
